FAERS Safety Report 4640360-X (Version None)
Quarter: 2005Q2

REPORT INFORMATION
  Report Type: 
  Country: None (occurrence: None)
  Receive Date: 20050420
  Receipt Date: 20040902
  Transmission Date: 20051028
  Serious: No
  Sender: FDA-Public Use
  Company Number: US-GLAXOSMITHKLINE-A0524515A

PATIENT

DRUGS (3)
  1. ESKALITH [Suspect]
  2. BACTRIM [Suspect]
     Indication: ILL-DEFINED DISORDER
  3. IBUPROFEN [Concomitant]

REACTIONS (2)
  - DRUG INTERACTION [None]
  - DRUG LEVEL INCREASED [None]
